FAERS Safety Report 16154499 (Version 1)
Quarter: 2019Q2

REPORT INFORMATION
  Report Type: Spontaneous
  Country: CL (occurrence: CL)
  Receive Date: 20190403
  Receipt Date: 20190403
  Transmission Date: 20190711
  Serious: Yes (Other)
  Sender: FDA-Public Use
  Company Number: CL-FRESENIUS KABI-FK201903442

PATIENT
  Age: 89 Year
  Sex: Female

DRUGS (3)
  1. PREDNISONE. [Suspect]
     Active Substance: PREDNISONE
     Indication: TEMPORAL ARTERITIS
     Dosage: UNKNOWN
     Route: 048
  2. METHYLPREDNISOLONE (MANUFACTURER UNKNOWN) [Suspect]
     Active Substance: METHYLPREDNISOLONE
     Indication: TEMPORAL ARTERITIS
     Dosage: UNKNOWN
     Route: 040
  3. DEXAMETHASONE INJECTION (MANUFACTURER UNKNOWN) [Suspect]
     Active Substance: DEXAMETHASONE
     Indication: TEMPORAL ARTERITIS
     Dosage: UNKNOWN
     Route: 042

REACTIONS (3)
  - Confusional state [Unknown]
  - Cerebellar ischaemia [Unknown]
  - IIIrd nerve paralysis [Unknown]
